FAERS Safety Report 7527678-8 (Version None)
Quarter: 2011Q2

REPORT INFORMATION
  Report Type: 
  Country: None (occurrence: None)
  Receive Date: 20110607
  Receipt Date: 20110523
  Transmission Date: 20111010
  Serious: Yes (Other)
  Sender: FDA-Public Use
  Company Number: PHHY2011US43885

PATIENT
  Age: 54 Year
  Sex: Female
  Weight: 58 kg

DRUGS (6)
  1. LOPRESSOR [Suspect]
     Dosage: UNK UKN, UNK
     Route: 048
  2. VICODIN [Concomitant]
     Dosage: UNK UKN, UNK
  3. PRISTIQ [Suspect]
     Indication: MALAISE
     Dosage: 50 MG, QD
     Route: 048
     Dates: start: 20110425
  4. ESTRIOL [Concomitant]
     Dosage: 1 MG, UNK
  5. DURAGESIC-100 [Concomitant]
     Dosage: UNK UKN, UNK
  6. SEROQUEL [Suspect]
     Dosage: 200 MG, UNK

REACTIONS (3)
  - URTICARIA [None]
  - SEROTONIN SYNDROME [None]
  - DEPRESSION [None]
